FAERS Safety Report 6936277-8 (Version None)
Quarter: 2010Q3

REPORT INFORMATION
  Report Type: 
  Country: None (occurrence: None)
  Receive Date: 20100817
  Receipt Date: 20100420
  Transmission Date: 20110219
  Serious: No
  Sender: FDA-Public Use
  Company Number: WAES 1003USA00008

PATIENT
  Age: 55 Year
  Sex: Female
  Weight: 42.6381 kg

DRUGS (4)
  1. ISENTRESS [Suspect]
     Indication: HIV INFECTION
     Dosage: 400 MG/BID/PO
     Route: 048
  2. BUSPAR [Concomitant]
  3. CELEXA [Concomitant]
  4. VALTREX [Concomitant]

REACTIONS (1)
  - HEADACHE [None]
